FAERS Safety Report 13694166 (Version 1)
Quarter: 2017Q2

REPORT INFORMATION
  Report Type: Spontaneous
  Country: US (occurrence: US)
  Receive Date: 20170626
  Receipt Date: 20170626
  Transmission Date: 20170830
  Serious: Yes (Hospitalization)
  Sender: FDA-Public Use
  Company Number: None

PATIENT
  Age: 79 Year
  Sex: Female

DRUGS (7)
  1. PEPCID [Concomitant]
     Active Substance: FAMOTIDINE
  2. ADVIL [Concomitant]
     Active Substance: IBUPROFEN
  3. CITRACAL [Concomitant]
     Active Substance: CALCIUM CITRATE
  4. METROPAL [Concomitant]
     Active Substance: METOPROLOL
  5. LIPITOR [Concomitant]
     Active Substance: ATORVASTATIN CALCIUM
  6. ECOTRIN [Concomitant]
     Active Substance: ASPIRIN
  7. ENBREL [Suspect]
     Active Substance: ETANERCEPT
     Indication: RHEUMATOID ARTHRITIS
     Route: 058
     Dates: start: 20150204

REACTIONS (2)
  - Drug dose omission [None]
  - Urinary tract infection [None]
